FAERS Safety Report 7290217-3 (Version None)
Quarter: 2011Q1

REPORT INFORMATION
  Report Type: 
  Country: None (occurrence: None)
  Receive Date: 20110214
  Receipt Date: 20110209
  Transmission Date: 20110831
  Serious: Yes (Death, Other)
  Sender: FDA-Public Use
  Company Number: PHHY2011JP10569

PATIENT
  Age: 68 Year
  Sex: Female

DRUGS (1)
  1. DIOVAN [Suspect]
     Dosage: 40 MG, UNK
     Route: 048

REACTIONS (13)
  - BLOOD PRESSURE DECREASED [None]
  - ACUTE HEPATIC FAILURE [None]
  - RIGHT VENTRICULAR FAILURE [None]
  - CARDIOGENIC SHOCK [None]
  - CARDIO-RESPIRATORY ARREST [None]
  - URINE OUTPUT DECREASED [None]
  - VENTRICULAR HYPERTROPHY [None]
  - ATRIOVENTRICULAR BLOCK COMPLETE [None]
  - VENTRICULAR TACHYCARDIA [None]
  - RENAL FAILURE ACUTE [None]
  - BLOOD CREATINE PHOSPHOKINASE INCREASED [None]
  - HEART RATE DECREASED [None]
  - TRICUSPID VALVE INCOMPETENCE [None]
